FAERS Safety Report 5801600-4 (Version None)
Quarter: 2008Q2

REPORT INFORMATION
  Report Type: 
  Country: None (occurrence: None)
  Receive Date: 20080626
  Receipt Date: 20071112
  Transmission Date: 20081010
  Serious: Yes (Hospitalization)
  Sender: FDA-Public Use
  Company Number: 534787

PATIENT
  Age: 61 Year
  Sex: Male
  Weight: 94.8 kg

DRUGS (2)
  1. XELODA [Suspect]
     Indication: HEAD AND NECK CANCER
     Dosage: 2000 MG 2 PER DAY
     Dates: end: 20071129
  2. COUMADIN [Concomitant]

REACTIONS (5)
  - COLITIS [None]
  - ENTEROCOLITIS HAEMORRHAGIC [None]
  - GASTROINTESTINAL INFLAMMATION [None]
  - MUCOSAL INFLAMMATION [None]
  - RECTAL HAEMORRHAGE [None]
